FAERS Safety Report 23520845 (Version 1)
Quarter: 2024Q1

REPORT INFORMATION
  Report Type: Spontaneous
  Country: US (occurrence: US)
  Receive Date: 20240214
  Receipt Date: 20240214
  Transmission Date: 20240410
  Serious: Yes (Other)
  Sender: FDA-Public Use
  Company Number: US-QILU PHARMACEUTICAL CO.LTD.-QLU-000020-2024

PATIENT
  Age: 56 Year
  Sex: Male

DRUGS (16)
  1. OLANZAPINE [Suspect]
     Active Substance: OLANZAPINE
     Indication: Dementia with Lewy bodies
     Route: 065
  2. OLANZAPINE [Suspect]
     Active Substance: OLANZAPINE
     Indication: Psychotic disorder
  3. RISPERIDONE [Suspect]
     Active Substance: RISPERIDONE
     Indication: Dementia with Lewy bodies
     Route: 065
  4. RISPERIDONE [Suspect]
     Active Substance: RISPERIDONE
     Indication: Psychotic disorder
  5. QUETIAPINE [Suspect]
     Active Substance: QUETIAPINE
     Indication: Dementia with Lewy bodies
     Dosage: UNK
     Route: 065
  6. QUETIAPINE [Suspect]
     Active Substance: QUETIAPINE
     Indication: Psychotic disorder
     Dosage: INCREASED TITRATION TO 150 MG
     Route: 065
  7. CARBIDOPA\LEVODOPA [Concomitant]
     Active Substance: CARBIDOPA\LEVODOPA
     Indication: Dementia with Lewy bodies
     Dosage: UNK
     Route: 065
  8. CARBIDOPA\LEVODOPA [Concomitant]
     Active Substance: CARBIDOPA\LEVODOPA
     Indication: Psychotic disorder
  9. PAROXETINE [Concomitant]
     Active Substance: PAROXETINE
     Indication: Dementia with Lewy bodies
     Dosage: UNK
     Route: 065
  10. PAROXETINE [Concomitant]
     Active Substance: PAROXETINE
     Indication: Psychotic disorder
  11. RIVASTIGMINE [Concomitant]
     Active Substance: RIVASTIGMINE
     Indication: Dementia with Lewy bodies
     Dosage: UNK
     Route: 065
  12. RIVASTIGMINE [Concomitant]
     Active Substance: RIVASTIGMINE
     Indication: Psychotic disorder
  13. CLONAZEPAM [Concomitant]
     Active Substance: CLONAZEPAM
     Indication: Dementia with Lewy bodies
     Dosage: UNK
     Route: 065
  14. CLONAZEPAM [Concomitant]
     Active Substance: CLONAZEPAM
     Indication: Psychotic disorder
  15. MEMANTINE [Concomitant]
     Active Substance: MEMANTINE
     Indication: Dementia with Lewy bodies
     Dosage: UNK
     Route: 065
  16. MEMANTINE [Concomitant]
     Active Substance: MEMANTINE
     Indication: Psychotic disorder

REACTIONS (9)
  - Hallucination, auditory [Unknown]
  - Hallucination, visual [Unknown]
  - Hallucination, olfactory [Unknown]
  - Motor dysfunction [Unknown]
  - Condition aggravated [Unknown]
  - Delusion [Unknown]
  - Off label use [Recovered/Resolved]
  - Off label use [Recovered/Resolved]
  - Contraindicated product administered [Unknown]
